FAERS Safety Report 7139003-5 (Version None)
Quarter: 2010Q4

REPORT INFORMATION
  Report Type: 
  Country: None (occurrence: None)
  Receive Date: 20101206
  Receipt Date: 20101130
  Transmission Date: 20110411
  Serious: Yes (Other)
  Sender: FDA-Public Use
  Company Number: A0896960A

PATIENT
  Age: 67 Year
  Sex: Female

DRUGS (3)
  1. ADVAIR [Suspect]
     Indication: ASTHMA
     Dosage: 1PUFF TWICE PER DAY
     Route: 055
     Dates: end: 20100831
  2. VIVELLE [Concomitant]
     Route: 062
  3. VENTOLIN [Concomitant]

REACTIONS (6)
  - ANGIOEDEMA [None]
  - CIRCUMORAL OEDEMA [None]
  - CONDITION AGGRAVATED [None]
  - DRUG HYPERSENSITIVITY [None]
  - LOCALISED OEDEMA [None]
  - URTICARIA [None]
